FAERS Safety Report 16260390 (Version 2)
Quarter: 2019Q4

REPORT INFORMATION
  Report Type: Spontaneous
  Country: DE (occurrence: DE)
  Receive Date: 20190501
  Receipt Date: 20191218
  Transmission Date: 20200122
  Serious: Yes (Death, Hospitalization, Other)
  Sender: FDA-Public Use
  Company Number: PHHY2019DE087708

PATIENT
  Age: 55 Year
  Sex: Male
  Weight: 88 kg

DRUGS (4)
  1. TACROLIMUS. [Suspect]
     Active Substance: TACROLIMUS
     Indication: HEART TRANSPLANT
     Dosage: 1 MG, 1-0-2
     Route: 065
  2. ACETYLSALICYLIC ACID [Suspect]
     Active Substance: ASPIRIN
     Indication: PRODUCT USED FOR UNKNOWN INDICATION
     Dosage: 100 MG, QD, 0-1-0
     Route: 065
  3. TACROLIMUS. [Suspect]
     Active Substance: TACROLIMUS
     Indication: IMMUNOSUPPRESSANT DRUG THERAPY
  4. ENALAPRIL [Suspect]
     Active Substance: ENALAPRIL
     Indication: PRODUCT USED FOR UNKNOWN INDICATION
     Dosage: 2.5 MG, 1-0-0
     Route: 065

REACTIONS (10)
  - Melaena [Unknown]
  - Dizziness [Unknown]
  - Iron deficiency anaemia [Unknown]
  - Pallor [Unknown]
  - Multiple organ dysfunction syndrome [Fatal]
  - Duodenal ulcer haemorrhage [Unknown]
  - Dyspnoea exertional [Unknown]
  - Post transplant lymphoproliferative disorder [Fatal]
  - Epstein-Barr virus associated lymphoproliferative disorder [Unknown]
  - Duodenal ulcer [Fatal]
